FAERS Safety Report 16143071 (Version 3)
Quarter: 2019Q2

REPORT INFORMATION
  Report Type: Report from Study
  Country: US (occurrence: US)
  Receive Date: 20190401
  Receipt Date: 20190529
  Transmission Date: 20190711
  Serious: Yes (Hospitalization)
  Sender: FDA-Public Use
  Company Number: US-BIOGEN-2019BI00716935

PATIENT
  Age: 64 Year
  Sex: Female

DRUGS (7)
  1. TECFIDERA [Suspect]
     Active Substance: DIMETHYL FUMARATE
     Route: 065
     Dates: start: 2019
  2. ATORVASTATIN CALCIUM. [Concomitant]
     Active Substance: ATORVASTATIN CALCIUM
     Indication: PRODUCT USED FOR UNKNOWN INDICATION
     Route: 048
     Dates: start: 20190322
  3. AMANTADINE HYDROCHLORIDE. [Concomitant]
     Active Substance: AMANTADINE HYDROCHLORIDE
     Indication: PRODUCT USED FOR UNKNOWN INDICATION
     Route: 048
     Dates: start: 20160225
  4. PREDNISONE. [Concomitant]
     Active Substance: PREDNISONE
     Indication: PRODUCT USED FOR UNKNOWN INDICATION
     Dosage: TAPERING COURSE
     Route: 065
  5. TECFIDERA [Suspect]
     Active Substance: DIMETHYL FUMARATE
     Indication: MULTIPLE SCLEROSIS
     Dosage: STARTING DOSE
     Route: 048
  6. METHYLPREDNISOLONE. [Concomitant]
     Active Substance: METHYLPREDNISOLONE
     Indication: PRODUCT USED FOR UNKNOWN INDICATION
     Route: 065
  7. TECFIDERA [Suspect]
     Active Substance: DIMETHYL FUMARATE
     Dosage: MAINTENANCE DOSE
     Route: 048

REACTIONS (6)
  - Vomiting [Unknown]
  - Multiple sclerosis relapse [Unknown]
  - Chest pain [Unknown]
  - Nausea [Unknown]
  - Intervertebral disc protrusion [Unknown]
  - Intervertebral disc space narrowing [Unknown]

NARRATIVE: CASE EVENT DATE: 201511
